FAERS Safety Report 18086478 (Version 2)
Quarter: 2020Q3

REPORT INFORMATION
  Report Type: Report from Study
  Country: None (occurrence: CH)
  Receive Date: 20200728
  Receipt Date: 20200831
  Transmission Date: 20201103
  Serious: Yes (Hospitalization)
  Sender: FDA-Public Use
  Company Number: CH-ABBVIE-19K-151-2842196-00

PATIENT
  Sex: Male
  Weight: 85 kg

DRUGS (5)
  1. DUODOPA [Suspect]
     Active Substance: CARBIDOPA\LEVODOPA
     Dosage: MORNING DOSE: 5.6 ML, CD DAY: 3 ML/H, CONTINUOUS?RATE NIGHT: 0 ML/H, ED: 3 ML
     Route: 050
     Dates: start: 20200313, end: 2020
  2. DUODOPA [Suspect]
     Active Substance: CARBIDOPA\LEVODOPA
     Indication: PARKINSON^S DISEASE
     Route: 050
     Dates: start: 20150813, end: 20160812
  3. DUODOPA [Suspect]
     Active Substance: CARBIDOPA\LEVODOPA
     Dosage: MD: 6 ML, CD DAY: 3.4 ML/H, CD NIGHT: 0 ML/H, ED: 2.5 ML, 16 H THERAPY
     Route: 050
     Dates: start: 2020
  4. DUODOPA [Suspect]
     Active Substance: CARBIDOPA\LEVODOPA
     Dosage: MORNING DOSE: 8 ML, CONTINUOUS DAY: 4.4 ML/H, CONTINUOUS NIGHT: 0 ML/H,EXTRA DOSE:3 ML
     Route: 050
     Dates: start: 20160812, end: 20170313
  5. DUODOPA [Suspect]
     Active Substance: CARBIDOPA\LEVODOPA
     Dosage: MORNING DOSE: 5.6 ML, CONTINUOUS DAY: 3 ML/H, CONTINUOUS NIGHT: 0 ML/H,EXTRA DOSE: 3 ML
     Route: 050
     Dates: start: 20170313

REACTIONS (18)
  - Dyskinesia [Not Recovered/Not Resolved]
  - Freezing phenomenon [Not Recovered/Not Resolved]
  - Stoma site inflammation [Not Recovered/Not Resolved]
  - Stoma complication [Not Recovered/Not Resolved]
  - Medical device site pain [Unknown]
  - Fall [Not Recovered/Not Resolved]
  - Stoma site infection [Unknown]
  - Stoma site extravasation [Not Recovered/Not Resolved]
  - Stoma site reaction [Not Recovered/Not Resolved]
  - Wound [Not Recovered/Not Resolved]
  - Stoma site erythema [Not Recovered/Not Resolved]
  - Embedded device [Recovered/Resolved]
  - Stomal hernia [Not Recovered/Not Resolved]
  - Medical device site scar [Not Recovered/Not Resolved]
  - Device loosening [Unknown]
  - Stoma site irritation [Unknown]
  - Stoma site hypergranulation [Not Recovered/Not Resolved]
  - Stoma site discharge [Not Recovered/Not Resolved]

NARRATIVE: CASE EVENT DATE: 2019
